FAERS Safety Report 6188915-8 (Version None)
Quarter: 2009Q2

REPORT INFORMATION
  Report Type: 
  Country: None (occurrence: None)
  Receive Date: 20090513
  Receipt Date: 20090507
  Transmission Date: 20091009
  Serious: Yes (Other)
  Sender: FDA-Public Use
  Company Number: US-PFIZER INC-2009194540

PATIENT
  Sex: Female

DRUGS (3)
  1. CELEBREX [Suspect]
     Indication: ARTHRITIS
     Dosage: 200 MG, 1X/DAY
     Route: 048
     Dates: start: 20090301
  2. CELEBREX [Suspect]
     Indication: PAIN IN EXTREMITY
  3. ANTIDEPRESSANTS [Concomitant]
     Dosage: UNK
     Route: 048

REACTIONS (2)
  - DISORIENTATION [None]
  - HEARING IMPAIRED [None]
